FAERS Safety Report 7820358-0 (Version None)
Quarter: 2011Q4

REPORT INFORMATION
  Report Type: 
  Country: None (occurrence: None)
  Receive Date: 20111013
  Receipt Date: 20110929
  Transmission Date: 20120403
  Serious: Yes (Hospitalization)
  Sender: FDA-Public Use
  Company Number: JPI-P-017146

PATIENT
  Age: 44 Year
  Sex: Male

DRUGS (7)
  1. XYREM [Suspect]
     Indication: INSOMNIA
     Dosage: ORAL
     Route: 048
     Dates: start: 20070601
  2. BUPROPION HCL [Concomitant]
  3. GABAPENTIN [Concomitant]
  4. MIRTAZAPINE [Concomitant]
  5. RAMELTEON [Concomitant]
  6. BUPROPION HYDROCHLORIDE [Concomitant]
  7. ACETAMINOPHEN [Concomitant]

REACTIONS (8)
  - MUSCULAR WEAKNESS [None]
  - FALL [None]
  - DIPLEGIA [None]
  - PULMONARY SARCOIDOSIS [None]
  - RHABDOMYOLYSIS [None]
  - CREUTZFELDT-JAKOB DISEASE [None]
  - VIITH NERVE PARALYSIS [None]
  - TREMOR [None]
